FAERS Safety Report 24346940 (Version 1)
Quarter: 2024Q3

REPORT INFORMATION
  Report Type: Spontaneous
  Country: DE (occurrence: DE)
  Receive Date: 20240921
  Receipt Date: 20240921
  Transmission Date: 20241017
  Serious: Yes (Other)
  Sender: ABBVIE
  Company Number: DE-ABBVIE-5929360

PATIENT
  Age: 23 Year
  Sex: Male
  Weight: 76 kg

DRUGS (2)
  1. HUMIRA [Suspect]
     Active Substance: ADALIMUMAB
     Indication: Product used for unknown indication
     Route: 058
  2. PREDNISOLONE [Concomitant]
     Active Substance: PREDNISOLONE
     Indication: Product used for unknown indication

REACTIONS (8)
  - Small intestinal stenosis [Recovered/Resolved]
  - Abdominal pain [Unknown]
  - Weight decreased [Recovered/Resolved]
  - Abdominal distension [Unknown]
  - Vomiting [Unknown]
  - Post procedural complication [Unknown]
  - Hypersensitivity [Unknown]
  - Faecal calprotectin abnormal [Unknown]

NARRATIVE: CASE EVENT DATE: 20230901
